FAERS Safety Report 8364625-3 (Version None)
Quarter: 2012Q2

REPORT INFORMATION
  Report Type: 
  Country: None (occurrence: None)
  Receive Date: 20120516
  Receipt Date: 20120514
  Transmission Date: 20120825
  Serious: Yes (Death, Hospitalization, Other)
  Sender: FDA-Public Use
  Company Number: FR-ROCHE-1054207

PATIENT
  Age: 50 Year
  Sex: Female
  Weight: 64 kg

DRUGS (3)
  1. ALIMTA [Concomitant]
     Indication: BRONCHIAL CARCINOMA
     Dosage: 2 COURSES
  2. AVASTIN [Suspect]
     Indication: ADENOCARCINOMA
     Dates: start: 20111109, end: 20111109
  3. CISPLATIN [Concomitant]
     Indication: BRONCHIAL CARCINOMA
     Dosage: 2 COURSES

REACTIONS (2)
  - ADRENAL HAEMORRHAGE [None]
  - ABDOMINAL PAIN [None]
